FAERS Safety Report 20948568 (Version 2)
Quarter: 2022Q3

REPORT INFORMATION
  Report Type: Spontaneous
  Country: JP (occurrence: JP)
  Receive Date: 20220612
  Receipt Date: 20220712
  Transmission Date: 20221027
  Serious: Yes (Death, Other)
  Sender: FDA-Public Use
  Company Number: JP-BoehringerIngelheim-2022-BI-175727

PATIENT
  Age: 65 Year
  Sex: Female

DRUGS (3)
  1. GILOTRIF [Suspect]
     Active Substance: AFATINIB
     Indication: Lung adenocarcinoma
     Route: 065
  2. GILOTRIF [Suspect]
     Active Substance: AFATINIB
     Indication: EGFR gene mutation
     Route: 065
  3. GILOTRIF [Suspect]
     Active Substance: AFATINIB
     Route: 065

REACTIONS (1)
  - Metastases to meninges [Fatal]
